FAERS Safety Report 7570528-4 (Version None)
Quarter: 2011Q2

REPORT INFORMATION
  Report Type: 
  Country: None (occurrence: None)
  Receive Date: 20110624
  Receipt Date: 20110328
  Transmission Date: 20111010
  Serious: No
  Sender: FDA-Public Use
  Company Number: US-ALLERGAN-1104309US

PATIENT
  Age: 56 Year
  Sex: Female

DRUGS (1)
  1. LATISSE [Suspect]
     Indication: GROWTH OF EYELASHES
     Dosage: 1 GTT, QOD
     Route: 061
     Dates: start: 20110217

REACTIONS (4)
  - ERYTHEMA OF EYELID [None]
  - EYELID PAIN [None]
  - HYPERAESTHESIA [None]
  - EYELIDS PRURITUS [None]
